FAERS Safety Report 8084318-X (Version None)
Quarter: 2012Q1

REPORT INFORMATION
  Report Type: 
  Country: None (occurrence: None)
  Receive Date: 20120128
  Receipt Date: 20110204
  Transmission Date: 20120608
  Serious: No
  Sender: FDA-Public Use
  Company Number: US-ABBOTT-11P-163-0699639-00

PATIENT
  Age: 61 Year
  Sex: Female

DRUGS (11)
  1. LEUCOVORIN CALCIUM [Concomitant]
     Indication: RHEUMATOID ARTHRITIS
  2. MULTI-VITAMIN [Concomitant]
     Indication: PRODUCT USED FOR UNKNOWN INDICATION
  3. FOLIC ACID [Concomitant]
     Indication: PRODUCT USED FOR UNKNOWN INDICATION
  4. ATENOLOL [Concomitant]
     Indication: BLOOD PRESSURE
  5. METHOTREXATE [Concomitant]
     Indication: PRODUCT USED FOR UNKNOWN INDICATION
  6. CALCIUM [Concomitant]
     Indication: RHEUMATOID ARTHRITIS
  7. EVISTA [Concomitant]
     Indication: BREAST DISORDER FEMALE
  8. HUMIRA [Suspect]
     Indication: RHEUMATOID ARTHRITIS
     Dates: start: 20110104
  9. SULFASALAZINE [Concomitant]
     Indication: RHEUMATOID ARTHRITIS
  10. VITAMIN D [Concomitant]
     Indication: PRODUCT USED FOR UNKNOWN INDICATION
  11. EVISTA [Concomitant]
     Indication: BONE DISORDER

REACTIONS (2)
  - SINUSITIS [None]
  - NASOPHARYNGITIS [None]
